FAERS Safety Report 22609695 (Version 5)
Quarter: 2023Q4

REPORT INFORMATION
  Report Type: Report from Study
  Country: CN (occurrence: None)
  Receive Date: 20230616
  Receipt Date: 20231002
  Transmission Date: 20240110
  Serious: Yes (Life-Threatening, Hospitalization)
  Sender: FDA-Public Use
  Company Number: CN-ROCHE-2760088

PATIENT
  Age: 61 Year
  Sex: Male
  Weight: 72.5 kg

DRUGS (16)
  1. ATEZOLIZUMAB [Suspect]
     Active Substance: ATEZOLIZUMAB
     Indication: Small cell lung cancer extensive stage
     Dosage: LIQUID?DATE OF MOST RECENT DOSE OF ATEZOLIZUMAB PRIOR TO SAE ONSET: 28/DEC/2020?DATE OF MOST RECENT
     Route: 041
     Dates: start: 20201228, end: 20220817
  2. ATEZOLIZUMAB [Suspect]
     Active Substance: ATEZOLIZUMAB
     Dosage: LIQUID?THE DATE OF MOST RECENT DOSE OF ATEZOLIZUMAB WAS ON 16/MAR/2023?ON 10/APR/2023, THE DOSE OF T
     Route: 041
     Dates: start: 20201228, end: 20230608
  3. ETOPOSIDE [Suspect]
     Active Substance: ETOPOSIDE
     Indication: Small cell lung cancer extensive stage
     Dosage: LIQUID?DATE OF MOST RECENT DOSE OF ETOPOSIDE PRIOR TO SAE ONSET 30/DEC/2020?DATE OF MOST RECENT DOSE
     Route: 042
     Dates: start: 20201228
  4. CISPLATIN [Suspect]
     Active Substance: CISPLATIN
     Indication: Small cell lung cancer extensive stage
     Dosage: 40MG FROM DAY1 TO DAY2; 50MG AT DAY3 PER 3 WEEKS.?LIQUID ?DATE OF MOST RECENT DOSE OF CISPLATIN PRIO
     Route: 042
     Dates: start: 20201228
  5. ATORVASTATIN CALCIUM [Concomitant]
     Active Substance: ATORVASTATIN CALCIUM
     Route: 048
     Dates: start: 20211112, end: 20220823
  6. ATORVASTATIN CALCIUM [Concomitant]
     Active Substance: ATORVASTATIN CALCIUM
     Route: 048
     Dates: start: 20221026
  7. CODEINE [Concomitant]
     Active Substance: CODEINE
     Dates: start: 20210204
  8. TRAMADOL HYDROCHLORIDE [Concomitant]
     Active Substance: TRAMADOL HYDROCHLORIDE
     Dates: start: 20210607, end: 20210607
  9. ASPIRIN [Concomitant]
     Active Substance: ASPIRIN
     Dates: start: 20211112, end: 20220817
  10. OMEPRAZOLE [Concomitant]
     Active Substance: OMEPRAZOLE
     Dates: start: 20201225
  11. LOTENSIN [Concomitant]
     Active Substance: BENAZEPRIL HYDROCHLORIDE
     Route: 048
     Dates: start: 20211112
  12. BENAZEPRIL HYDROCHLORIDE [Concomitant]
     Active Substance: BENAZEPRIL HYDROCHLORIDE
     Dates: start: 20201221
  13. BENAZEPRIL HYDROCHLORIDE [Concomitant]
     Active Substance: BENAZEPRIL HYDROCHLORIDE
     Dates: start: 20211112, end: 20220823
  14. BENAZEPRIL HYDROCHLORIDE [Concomitant]
     Active Substance: BENAZEPRIL HYDROCHLORIDE
     Dates: start: 20221026
  15. LIKEJUN TABLETS [Concomitant]
     Dates: start: 20230202
  16. LEUCOGEN (CHINA) [Concomitant]
     Dates: start: 20230202

REACTIONS (4)
  - Acute myeloid leukaemia [Not Recovered/Not Resolved]
  - Pneumonia [Recovered/Resolved]
  - Epiglottitis [Recovered/Resolved]
  - Gastritis [Recovered/Resolved]

NARRATIVE: CASE EVENT DATE: 20210126
